FAERS Safety Report 6999482-0 (Version None)
Quarter: 2010Q3

REPORT INFORMATION
  Report Type: 
  Country: None (occurrence: None)
  Receive Date: 20100920
  Receipt Date: 20070905
  Transmission Date: 20110219
  Serious: Yes (Hospitalization)
  Sender: FDA-Public Use
  Company Number: US-ASTRAZENECA-2006UW11981

PATIENT
  Age: 19631 Day
  Sex: Female
  Weight: 65.3 kg

DRUGS (10)
  1. SEROQUEL [Suspect]
     Indication: BIPOLAR DISORDER
     Dosage: 25 MG - 200 MG
     Route: 048
     Dates: start: 20050103
  2. SEROQUEL [Suspect]
     Indication: INSOMNIA
     Dosage: 25 MG - 200 MG
     Route: 048
     Dates: start: 20050103
  3. SEROQUEL [Suspect]
     Route: 048
     Dates: start: 20050301
  4. SEROQUEL [Suspect]
     Route: 048
     Dates: start: 20050301
  5. ZYPREXA [Suspect]
     Dates: start: 19970101, end: 20040101
  6. GEODON [Concomitant]
     Route: 048
     Dates: start: 20040820
  7. ZOLOFT [Concomitant]
     Route: 048
     Dates: start: 20010213
  8. CLONAZEPAM [Concomitant]
     Route: 048
     Dates: start: 20020223
  9. WELLBUTRIN [Concomitant]
     Route: 048
     Dates: start: 20060711
  10. HYDROCODONE BITARTRATE AND ACETAMINOPHEN [Concomitant]
     Dosage: 5 - 500 MG
     Dates: start: 20020723

REACTIONS (2)
  - DIABETES MELLITUS [None]
  - SUICIDAL IDEATION [None]
